FAERS Safety Report 6670346-5 (Version None)
Quarter: 2010Q2

REPORT INFORMATION
  Report Type: 
  Country: None (occurrence: None)
  Receive Date: 20100405
  Receipt Date: 20100330
  Transmission Date: 20101027
  Serious: Yes (Death, Other)
  Sender: FDA-Public Use
  Company Number: 2010SP018895

PATIENT
  Age: 46 Year
  Sex: Male

DRUGS (10)
  1. DEXAMETHASONE [Suspect]
     Indication: FATIGUE
     Dosage: 2 MG ; 4 MG
  2. CARBOPLATIN [Suspect]
     Indication: METASTATIC MALIGNANT MELANOMA
  3. MOVICOL (MOVICOL /01749801/) [Suspect]
     Indication: CONSTIPATION
     Dosage: 6 DF
  4. NAPROXEN [Suspect]
     Indication: ANALGESIC THERAPY
     Dosage: 500 MG;BID
  5. DIAMORPHINE [Concomitant]
  6. HYDROCORTISONE [Concomitant]
  7. KETAMINE [Concomitant]
  8. MIDAZOLAM HCL [Concomitant]
  9. MORPHINE SULFATE [Concomitant]
  10. WARFARIN SODIUM [Concomitant]

REACTIONS (20)
  - ABDOMINAL MASS [None]
  - AGGRESSION [None]
  - AGITATION [None]
  - BACK PAIN [None]
  - CONDITION AGGRAVATED [None]
  - CONFUSIONAL STATE [None]
  - CONSTIPATION [None]
  - ELECTROLYTE IMBALANCE [None]
  - GENERAL PHYSICAL HEALTH DETERIORATION [None]
  - HYPERHIDROSIS [None]
  - HYPERKALAEMIA [None]
  - HYPONATRAEMIA [None]
  - HYPOTENSION [None]
  - INTERNATIONAL NORMALISED RATIO INCREASED [None]
  - MALIGNANT NEOPLASM PROGRESSION [None]
  - METASTATIC MALIGNANT MELANOMA [None]
  - NEPHROPATHY TOXIC [None]
  - TACHYCARDIA [None]
  - TERMINAL STATE [None]
  - TUMOUR HAEMORRHAGE [None]
